FAERS Safety Report 19329116 (Version 4)
Quarter: 2021Q3

REPORT INFORMATION
  Report Type: Report from Study
  Country: US (occurrence: US)
  Receive Date: 20210529
  Receipt Date: 20210908
  Transmission Date: 20211014
  Serious: Yes (Other)
  Sender: FDA-Public Use
  Company Number: NVSC2021US118870

PATIENT
  Sex: Male

DRUGS (1)
  1. ENTRESTO [Suspect]
     Active Substance: SACUBITRIL\VALSARTAN
     Indication: CARDIAC FAILURE
     Dosage: 1 DF, BID(49/51 MG)
     Route: 048
     Dates: start: 2019

REACTIONS (4)
  - Hypoaesthesia [Unknown]
  - Pneumonia [Recovered/Resolved]
  - Nausea [Unknown]
  - Weight decreased [Unknown]
